FAERS Safety Report 15919832 (Version 1)
Quarter: 2019Q1

REPORT INFORMATION
  Report Type: Spontaneous
  Country: CN (occurrence: CN)
  Receive Date: 20190205
  Receipt Date: 20190205
  Transmission Date: 20190417
  Serious: Yes (Other)
  Sender: FDA-Public Use
  Company Number: CN-MYLANLABS-2019M1010423

PATIENT
  Age: 44 Year
  Sex: Female

DRUGS (9)
  1. PEMETREXED. [Suspect]
     Active Substance: PEMETREXED
     Dosage: TWO CYCLES OF MAINTENANCE TREATMENT WITH BEVACIZUMAB
     Route: 065
  2. BEVACIZUMAB. [Suspect]
     Active Substance: BEVACIZUMAB
     Dosage: TWO CYCLES OF MAINTENANCE TREATMENT WITH PEMETREXED
     Route: 065
  3. PEMETREXED. [Suspect]
     Active Substance: PEMETREXED
     Indication: NON-SMALL CELL LUNG CANCER
     Dosage: FOUR CYCLES WITH CARBOPLATIN AND BEVACIZUMAB
     Route: 065
  4. DOCETAXEL. [Suspect]
     Active Substance: DOCETAXEL
     Indication: NON-SMALL CELL LUNG CANCER
     Dosage: ONE CYCLE WITH BEVACIZUMAB AND CISPLATIN
     Route: 065
     Dates: start: 20180412
  5. CARBOPLATIN. [Suspect]
     Active Substance: CARBOPLATIN
     Indication: NON-SMALL CELL LUNG CANCER
     Dosage: FOUR CYCLES WITH PEMETREXED AND BEVACIZUMAB
     Route: 065
  6. CRIZOTINIB [Suspect]
     Active Substance: CRIZOTINIB
     Indication: NON-SMALL CELL LUNG CANCER
     Route: 048
     Dates: start: 20180430
  7. BEVACIZUMAB. [Suspect]
     Active Substance: BEVACIZUMAB
     Indication: NON-SMALL CELL LUNG CANCER
     Dosage: FOUR CYCLES WITH PEMETREXED AND CARBOPLATIN
     Route: 065
  8. CISPLATIN. [Suspect]
     Active Substance: CISPLATIN
     Indication: NON-SMALL CELL LUNG CANCER
     Dosage: ONE CYCLE WITH BEVACIZUMAB AND DOCETAXEL
     Route: 065
     Dates: start: 20180412
  9. BEVACIZUMAB. [Suspect]
     Active Substance: BEVACIZUMAB
     Dosage: ONE CYCLE WITH CISPLATIN AND DOCETAXEL ON 12 APRIL 2018
     Route: 065

REACTIONS (2)
  - Drug resistance [Unknown]
  - Acquired gene mutation [Unknown]
